FAERS Safety Report 8974390 (Version 2)
Quarter: 2013Q1

REPORT INFORMATION
  Report Type: Spontaneous
  Country: US (occurrence: None)
  Receive Date: 20121211
  Receipt Date: 20121219
  Transmission Date: 20140127
  Serious: Yes (Disabling)
  Sender: FDA-Public Use
  Company Number: DSA_61301_2012

PATIENT
  Sex: Male

DRUGS (1)
  1. ELIDEL 1 % (NOT SPECIFIED) [Suspect]
     Indication: DERMATITIS ATOPIC
     Dosage: (DF)

REACTIONS (1)
  - Lymphoma [None]
